FAERS Safety Report 9522510 (Version 1)
Quarter: 2013Q3

REPORT INFORMATION
  Report Type: Spontaneous
  Country: RO (occurrence: None)
  Receive Date: 20130903
  Receipt Date: 20130903
  Transmission Date: 20140515
  Serious: Yes (Other)
  Sender: FDA-Public Use
  Company Number: 2013037122

PATIENT
  Age: 36 Year
  Sex: Female

DRUGS (1)
  1. C1 ESTERASE INHIBITOR (HUMAN) [Suspect]
     Indication: HEREDITARY ANGIOEDEMA
     Dosage: INTRAVENOUS NOT OTHERWISE SPECIFIED), INTRAVENOUS (NOT OTHERWISE SPECIFITED)
     Route: 042
     Dates: start: 20130619, end: 20130619

REACTIONS (2)
  - Abortion spontaneous [None]
  - Exposure during pregnancy [None]
